FAERS Safety Report 8593966-X (Version None)
Quarter: 2012Q3

REPORT INFORMATION
  Report Type: 
  Country: None (occurrence: None)
  Receive Date: 20120814
  Receipt Date: 20120807
  Transmission Date: 20120928
  Serious: Yes (Other)
  Sender: FDA-Public Use
  Company Number: JP-PFIZER INC-2012195897

PATIENT
  Age: 79 Year
  Sex: Male

DRUGS (3)
  1. CELEBREX [Suspect]
     Indication: SPINAL COLUMN STENOSIS
     Dosage: UNK
     Route: 048
     Dates: start: 20080901, end: 20081113
  2. LANSOPRAZOLE [Suspect]
     Indication: PROPHYLAXIS AGAINST GASTROINTESTINAL ULCER
     Dosage: 15 MG, 1X/DAY
     Route: 048
     Dates: start: 20080901, end: 20081126
  3. ASPIRIN [Concomitant]
     Indication: CEREBROVASCULAR DISORDER
     Dosage: 81 MG, 1X/DAY
     Route: 048

REACTIONS (5)
  - COLITIS MICROSCOPIC [None]
  - HYPOALBUMINAEMIA [None]
  - HYPOKALAEMIA [None]
  - ANAEMIA [None]
  - C-REACTIVE PROTEIN INCREASED [None]
